FAERS Safety Report 4284613-6 (Version None)
Quarter: 2004Q1

REPORT INFORMATION
  Report Type: 
  Country: None (occurrence: None)
  Receive Date: 20040130
  Receipt Date: 20040114
  Transmission Date: 20041129
  Serious: Yes (Hospitalization)
  Sender: FDA-Public Use
  Company Number: JP_030801524

PATIENT
  Age: 36 Year
  Sex: Male

DRUGS (3)
  1. GEMZAR [Suspect]
     Indication: PANCREATIC CARCINOMA
  2. CISPLATIN [Concomitant]
  3. URSO [Concomitant]

REACTIONS (5)
  - BONE MARROW DEPRESSION [None]
  - MOUTH ULCERATION [None]
  - PHARYNGEAL ULCERATION [None]
  - SKIN TOXICITY [None]
  - SKIN ULCER [None]
